FAERS Safety Report 6666302-3 (Version None)
Quarter: 2010Q2

REPORT INFORMATION
  Report Type: 
  Country: None (occurrence: None)
  Receive Date: 20100402
  Receipt Date: 20100329
  Transmission Date: 20101027
  Serious: Yes (Hospitalization)
  Sender: FDA-Public Use
  Company Number: US-GILEAD-2010-0028179

PATIENT
  Sex: Male

DRUGS (20)
  1. LETAIRIS [Suspect]
     Indication: PULMONARY ARTERIAL HYPERTENSION
     Route: 048
  2. TORSEMIDE [Concomitant]
  3. COREG [Concomitant]
  4. DARVOCET-N 100 [Concomitant]
  5. PROTONIX [Concomitant]
  6. AMBIEN [Concomitant]
  7. ALDACTAZIDE [Concomitant]
  8. ZOLOFT [Concomitant]
  9. IMDUR [Concomitant]
  10. NITRO-BID [Concomitant]
  11. GLIPIZIDE [Concomitant]
  12. DIAZEPAM [Concomitant]
  13. LOVAZA [Concomitant]
  14. ALLOPURINOL [Concomitant]
  15. VITAMIN C [Concomitant]
  16. VYTORIN [Concomitant]
  17. MULTI-VITAMIN [Concomitant]
  18. ASPIRIN [Concomitant]
  19. TYLENOL-500 [Concomitant]
  20. VITAMIN D3 [Concomitant]

REACTIONS (3)
  - CARDIAC FAILURE CONGESTIVE [None]
  - DYSPNOEA [None]
  - SWELLING [None]
